FAERS Safety Report 6126811-2 (Version None)
Quarter: 2009Q1

REPORT INFORMATION
  Report Type: 
  Country: None (occurrence: None)
  Receive Date: 20090320
  Receipt Date: 20090312
  Transmission Date: 20090719
  Serious: Yes (Life-Threatening)
  Sender: FDA-Public Use
  Company Number: CA-AVENTIS-200912618GDDC

PATIENT
  Age: 40 Year
  Sex: Female

DRUGS (11)
  1. MINIRIN DDAVP [Suspect]
     Route: 042
  2. ACTONEL [Concomitant]
  3. CLINDAMYCIN HCL [Concomitant]
  4. DICLECTIN [Concomitant]
  5. FLUCONAZOLE [Concomitant]
  6. KYTRIL                             /01178101/ [Concomitant]
  7. MERIDIA [Concomitant]
  8. NEXIUM [Concomitant]
  9. PULMICORT-100 [Concomitant]
  10. SALBUTAMOL [Concomitant]
  11. ZOPICLONE [Concomitant]

REACTIONS (10)
  - ABDOMINAL PAIN [None]
  - AMNESIA [None]
  - BLEEDING TIME PROLONGED [None]
  - CONTUSION [None]
  - FEELING ABNORMAL [None]
  - INFUSION SITE EXTRAVASATION [None]
  - MOTOR DYSFUNCTION [None]
  - NAUSEA [None]
  - OEDEMA PERIPHERAL [None]
  - POOR PERIPHERAL CIRCULATION [None]
